FAERS Safety Report 5073822-4 (Version None)
Quarter: 2006Q3

REPORT INFORMATION
  Report Type: 
  Country: None (occurrence: None)
  Receive Date: 20060803
  Receipt Date: 20060713
  Transmission Date: 20061208
  Serious: Yes (Death)
  Sender: FDA-Public Use
  Company Number: 0610011

PATIENT
  Age: 9 Month
  Sex: Male

DRUGS (1)
  1. NITISINONE/COMPASS.USE [Suspect]
     Indication: TYROSINAEMIA
     Dosage: 1 MG/KG MG/KG/DAY, ORAL
     Route: 048
     Dates: start: 20030108, end: 20030212

REACTIONS (1)
  - HEPATIC FAILURE [None]
